FAERS Safety Report 6468901-0 (Version None)
Quarter: 2009Q4

REPORT INFORMATION
  Report Type: 
  Country: None (occurrence: None)
  Receive Date: 20091203
  Receipt Date: 20071219
  Transmission Date: 20100525
  Serious: Yes (Disabling)
  Sender: FDA-Public Use
  Company Number: US-ELI_LILLY_AND_COMPANY-USA040360713

PATIENT
  Sex: Male

DRUGS (2)
  1. CIALIS [Suspect]
     Indication: ERECTILE DYSFUNCTION
     Dosage: 20 MG, OTHER
     Dates: start: 20040211, end: 20040212
  2. BUPROPION HCL [Concomitant]
     Indication: DEPRESSION
     Dosage: UNK, UNKNOWN

REACTIONS (3)
  - DIZZINESS [None]
  - HAEMATOCRIT ABNORMAL [None]
  - OPTIC ISCHAEMIC NEUROPATHY [None]
